FAERS Safety Report 6868431-8 (Version None)
Quarter: 2010Q3

REPORT INFORMATION
  Report Type: 
  Country: None (occurrence: None)
  Receive Date: 20100722
  Receipt Date: 20080528
  Transmission Date: 20110219
  Serious: No
  Sender: FDA-Public Use
  Company Number: US-PFIZER INC-2008046441

PATIENT
  Sex: Female
  Weight: 63.05 kg

DRUGS (1)
  1. CHANTIX [Suspect]
     Indication: SMOKING CESSATION THERAPY
     Dates: start: 20080501

REACTIONS (4)
  - DIZZINESS [None]
  - NAUSEA [None]
  - POOR QUALITY SLEEP [None]
  - RASH [None]
